FAERS Safety Report 6673442-1 (Version None)
Quarter: 2010Q2

REPORT INFORMATION
  Report Type: 
  Country: None (occurrence: None)
  Receive Date: 20100408
  Receipt Date: 20090914
  Transmission Date: 20101027
  Serious: Yes (Hospitalization)
  Sender: FDA-Public Use
  Company Number: FR-CEPHALON-2009010553

PATIENT
  Sex: Male

DRUGS (9)
  1. TREANDA [Suspect]
     Indication: CHRONIC LYMPHOCYTIC LEUKAEMIA
     Dates: start: 20090311, end: 20090401
  2. ELISOR [Concomitant]
  3. TENORMIN [Concomitant]
  4. NITROGLYCERIN [Concomitant]
  5. THERALENE [Concomitant]
  6. ZELITREX [Concomitant]
  7. ARANESP [Concomitant]
  8. RITUXIMAB [Concomitant]
     Indication: CHRONIC LYMPHOCYTIC LEUKAEMIA
     Dates: start: 20080901, end: 20090201
  9. FLUDARABINE [Concomitant]
     Indication: CHRONIC LYMPHOCYTIC LEUKAEMIA
     Dates: start: 20080901, end: 20090201

REACTIONS (2)
  - PANCYTOPENIA [None]
  - RASH PUSTULAR [None]
